FAERS Safety Report 13498985 (Version 1)
Quarter: 2017Q2

REPORT INFORMATION
  Report Type: Spontaneous
  Country: US (occurrence: US)
  Receive Date: 20170429
  Receipt Date: 20170429
  Transmission Date: 20170830
  Serious: Yes (Other)
  Sender: FDA-Public Use
  Company Number: None

PATIENT
  Age: 66 Year
  Sex: Male
  Weight: 63 kg

DRUGS (2)
  1. LEVOFLOXACIN. [Suspect]
     Active Substance: LEVOFLOXACIN
     Indication: PNEUMONIA
     Dosage: ?          QUANTITY:1 TABLET(S);?
     Route: 048
     Dates: start: 20170326, end: 20170330
  2. DAILY VITAMIN [Concomitant]
     Active Substance: VITAMINS

REACTIONS (6)
  - Eye disorder [None]
  - Mania [None]
  - Rash [None]
  - Insomnia [None]
  - Miosis [None]
  - Photosensitivity reaction [None]

NARRATIVE: CASE EVENT DATE: 20170329
